FAERS Safety Report 4752983-8 (Version None)
Quarter: 2005Q3

REPORT INFORMATION
  Report Type: 
  Country: None (occurrence: None)
  Receive Date: 20050825
  Receipt Date: 20050804
  Transmission Date: 20060218
  Serious: Yes (Hospitalization, Other)
  Sender: FDA-Public Use
  Company Number: US_0502111719

PATIENT
  Age: 75 Year
  Sex: Female
  Weight: 77 kg

DRUGS (28)
  1. ZYPREXA [Suspect]
     Dosage: 7.5 MG
  2. DEPAKOTE [Concomitant]
  3. CLOZARIL [Concomitant]
  4. SEROQUEL [Concomitant]
  5. RISPERDAL [Concomitant]
  6. PAXIL [Concomitant]
  7. EFFEXOR [Concomitant]
  8. TOPAMAX [Concomitant]
  9. ASPIRIN [Concomitant]
  10. PANTOPRAZOLE [Concomitant]
  11. KLONOPIN [Concomitant]
  12. ARICEPT [Concomitant]
  13. DELTASONE (PREDNISONE    /00044701/) [Concomitant]
  14. TRICOR [Concomitant]
  15. SIMVASTATIN [Concomitant]
  16. DURAGESIC-100 [Concomitant]
  17. VIOXX [Concomitant]
  18. NEXIUM [Concomitant]
  19. ZESTRIL [Concomitant]
  20. LANOXIN [Concomitant]
  21. SEPTRA DS [Concomitant]
  22. TYLENOL W/ CODEINE NO. 3 [Concomitant]
  23. TYLOX [Concomitant]
  24. ZOCOR [Concomitant]
  25. XANAX [Concomitant]
  26. VITAMIN E    /001105/ [Concomitant]
  27. OS-CAL PLUS D [Concomitant]
  28. OPTIVAR (AZELASTINE HYDROCHLORIDE) [Concomitant]

REACTIONS (27)
  - ACUTE MYOCARDIAL INFARCTION [None]
  - ANGINA PECTORIS [None]
  - ANGINA UNSTABLE [None]
  - ANXIETY [None]
  - ATHEROSCLEROSIS [None]
  - ATRIOVENTRICULAR BLOCK FIRST DEGREE [None]
  - BLOOD CHOLESTEROL ABNORMAL [None]
  - BLOOD CHOLESTEROL INCREASED [None]
  - BLOOD PRESSURE INADEQUATELY CONTROLLED [None]
  - BLOOD TRIGLYCERIDES INCREASED [None]
  - BUNDLE BRANCH BLOCK LEFT [None]
  - BUNDLE BRANCH BLOCK RIGHT [None]
  - CARBON DIOXIDE INCREASED [None]
  - CONFUSIONAL STATE [None]
  - DIABETES MELLITUS NON-INSULIN-DEPENDENT [None]
  - ELECTROCARDIOGRAM REPOLARISATION ABNORMALITY [None]
  - ELECTROCARDIOGRAM ST SEGMENT DEPRESSION [None]
  - ELECTROCARDIOGRAM T WAVE INVERSION [None]
  - HYPOTENSION [None]
  - LIPASE INCREASED [None]
  - LOSS OF CONSCIOUSNESS [None]
  - MENTAL STATUS CHANGES [None]
  - RENAL FAILURE ACUTE [None]
  - SINUS TACHYCARDIA [None]
  - TREMOR [None]
  - VASCULAR DEMENTIA [None]
  - VENTRICULAR HYPERTROPHY [None]
